FAERS Safety Report 26161569 (Version 1)
Quarter: 2025Q4

REPORT INFORMATION
  Report Type: Spontaneous
  Country: US (occurrence: US)
  Receive Date: 20251216
  Receipt Date: 20251216
  Transmission Date: 20260118
  Serious: No
  Sender: NOVARTIS
  Company Number: US-002147023-NVSC2025US191669

PATIENT
  Age: 8 Year
  Sex: Male

DRUGS (1)
  1. ITVISMA [Suspect]
     Active Substance: ONASEMNOGENE ABEPARVOVEC-BRVE
     Indication: Spinal muscular atrophy
     Dosage: UNK, ONCE/SINGLE
     Route: 042

REACTIONS (1)
  - Drug ineffective [Unknown]
